FAERS Safety Report 8777950 (Version 1)
Quarter: 2012Q4

REPORT INFORMATION
  Report Type: 
  Country: FR (occurrence: FR)
  Receive Date: 20120912
  Receipt Date: 20120912
  Transmission Date: 20130627
  Serious: Yes (Other)
  Sender: FDA-Public Use
  Company Number: PHHY2012FR078454

PATIENT
  Age: 80 Year
  Sex: Female

DRUGS (5)
  1. AMOXICILLIN AND CLAVULANATE POTASSIUM [Suspect]
     Indication: URINARY TRACT INFECTION
     Route: 048
     Dates: start: 20120611
  2. SECTRAL [Concomitant]
  3. CALCIPARINE [Concomitant]
     Dates: start: 20120530
  4. KARDEGIC [Concomitant]
     Dates: start: 20120604
  5. LACTEOL [Concomitant]
     Dates: start: 20120611, end: 20120615

REACTIONS (10)
  - Toxic skin eruption [Unknown]
  - Genital erosion [Unknown]
  - Mouth haemorrhage [Unknown]
  - Lip haemorrhage [Unknown]
  - Skin lesion [Unknown]
  - Pyrexia [Unknown]
  - Gingivitis [Unknown]
  - Cheilitis [Unknown]
  - Oral mucosa erosion [Unknown]
  - Herpes virus infection [Recovering/Resolving]
